FAERS Safety Report 10009688 (Version 2)
Quarter: 2014Q1

REPORT INFORMATION
  Report Type: Spontaneous
  Country: US (occurrence: US)
  Receive Date: 20140312
  Receipt Date: 20140312
  Transmission Date: 20141002
  Serious: Yes (Other)
  Sender: FDA-Public Use
  Company Number: US-INCYTE CORPORATION-2012IN002319

PATIENT
  Age: 74 Year
  Sex: Male
  Weight: 98.41 kg

DRUGS (8)
  1. JAKAFI [Suspect]
     Indication: MYELOFIBROSIS
     Dosage: 15 MG, BID
     Route: 048
     Dates: start: 20120912
  2. JAKAFI [Suspect]
     Indication: ANAEMIA
  3. PROCRIT [Concomitant]
  4. JANUVIA [Concomitant]
  5. OMEPRAZOLE [Concomitant]
  6. LASIX [Concomitant]
  7. ALDACTONE [Concomitant]
  8. LEVOTHROID [Concomitant]

REACTIONS (2)
  - Haemoglobin decreased [Unknown]
  - Fatigue [Unknown]
